FAERS Safety Report 6546429-7 (Version None)
Quarter: 2010Q1

REPORT INFORMATION
  Report Type: 
  Country: None (occurrence: None)
  Receive Date: 20100122
  Receipt Date: 20100112
  Transmission Date: 20100710
  Serious: Yes (Hospitalization, Other)
  Sender: FDA-Public Use
  Company Number: PHEH2009US08642

PATIENT
  Sex: Female

DRUGS (2)
  1. EXJADE [Suspect]
     Indication: BLOOD DISORDER
     Dosage: 1750 MG, QD
     Route: 048
     Dates: start: 20080614
  2. EXJADE [Suspect]
     Indication: LYMPHATIC DISORDER

REACTIONS (5)
  - BLOOD COUNT ABNORMAL [None]
  - HAEMORRHAGE [None]
  - MALIGNANT NEOPLASM PROGRESSION [None]
  - MYELODYSPLASTIC SYNDROME [None]
  - THROMBOCYTOPENIA [None]
